FAERS Safety Report 24258333 (Version 1)
Quarter: 2024Q3

REPORT INFORMATION
  Report Type: Spontaneous
  Country: US (occurrence: US)
  Receive Date: 20240828
  Receipt Date: 20240828
  Transmission Date: 20241016
  Serious: No
  Sender: ABBVIE
  Company Number: US-ABBVIE-5894356

PATIENT
  Age: 34 Year
  Sex: Female
  Weight: 116 kg

DRUGS (2)
  1. UBRELVY [Suspect]
     Active Substance: UBROGEPANT
     Indication: Migraine
     Dosage: TIME INTERVAL: AS NECESSARY: TIME OF EXPOSURE- BEFORE LMP
     Route: 048
     Dates: start: 20230822, end: 202309
  2. AJOVY [Suspect]
     Active Substance: FREMANEZUMAB-VFRM
     Indication: Migraine
     Dosage: TIME INTERVAL: AS NECESSARY: TIME OF EXPOSURE- BEFORE LMP
     Route: 048
     Dates: start: 20230822, end: 20231018

REACTIONS (2)
  - Maternal exposure during pregnancy [Unknown]
  - Normal newborn [Unknown]
